FAERS Safety Report 9842840 (Version 1)
Quarter: 2013Q4

REPORT INFORMATION
  Report Type: Spontaneous
  Country: US (occurrence: None)
  Receive Date: 20131211
  Receipt Date: 20131211
  Transmission Date: 20140711
  Serious: Yes (Hospitalization)
  Sender: FDA-Public Use
  Company Number: ALL1-2011-03514

PATIENT
  Age: 4 Year
  Sex: Male

DRUGS (1)
  1. ELAPRASE (IDURSULFASE) CONCENTRATE FOR SOLUTION FOR INFUSION [Suspect]
     Indication: MUCOPOLYSACCHARIDOSIS II
     Dosage: 12 MG, 1X/WEEK (2 VIALS 6MG PER VIAL), IV DRIP, CONCENTRATE FOR SOLUTION FOR INFUSION
     Dates: start: 20080325

REACTIONS (4)
  - Pyrexia [None]
  - Dental caries [None]
  - Bruxism [None]
  - Device related infection [None]
